FAERS Safety Report 17162540 (Version 1)
Quarter: 2019Q4

REPORT INFORMATION
  Report Type: Spontaneous
  Country: US (occurrence: US)
  Receive Date: 20191122
  Receipt Date: 20191122
  Transmission Date: 20200122
  Serious: Yes (Death)
  Sender: FDA-Public Use
  Company Number: None

PATIENT
  Age: 47 Year
  Sex: Female
  Weight: 48.99 kg

DRUGS (1)
  1. PREGABALIN 150MG [Suspect]
     Active Substance: PREGABALIN
     Indication: FIBROMYALGIA
     Route: 048
     Dates: start: 20191030, end: 20191101

REACTIONS (4)
  - Paraesthesia oral [None]
  - Lip swelling [None]
  - Lip pruritus [None]
  - Lip pain [None]

NARRATIVE: CASE EVENT DATE: 20191030
